FAERS Safety Report 15427600 (Version 1)
Quarter: 2018Q3

REPORT INFORMATION
  Report Type: Spontaneous
  Country: CO (occurrence: CO)
  Receive Date: 20180925
  Receipt Date: 20180925
  Transmission Date: 20181010
  Serious: Yes (Other)
  Sender: FDA-Public Use
  Company Number: CO-009507513-1809COL011206

PATIENT
  Age: 42 Year
  Sex: Male

DRUGS (3)
  1. ABACAVIR. [Suspect]
     Active Substance: ABACAVIR
  2. ISENTRESS [Suspect]
     Active Substance: RALTEGRAVIR POTASSIUM
     Dosage: 400 MG, BID
     Route: 048
  3. LAMIVUDINE. [Suspect]
     Active Substance: LAMIVUDINE

REACTIONS (4)
  - Encephalitis cytomegalovirus [Not Recovered/Not Resolved]
  - Drug ineffective [Not Recovered/Not Resolved]
  - Meningitis tuberculous [Recovering/Resolving]
  - Creatinine renal clearance increased [Not Recovered/Not Resolved]
